FAERS Safety Report 6723262-4 (Version None)
Quarter: 2010Q2

REPORT INFORMATION
  Report Type: 
  Country: None (occurrence: None)
  Receive Date: 20100513
  Receipt Date: 20100502
  Transmission Date: 20101027
  Serious: Yes (Death, Hospitalization, Other)
  Sender: FDA-Public Use
  Company Number: CA-ABBOTT-10P-028-0639543-00

PATIENT
  Sex: Female
  Weight: 38.59 kg

DRUGS (8)
  1. HUMIRA [Suspect]
     Indication: RHEUMATOID ARTHRITIS
     Route: 058
     Dates: start: 20051201, end: 20100408
  2. HYDROMORPHONE HCL [Suspect]
     Indication: PAIN MANAGEMENT
  3. METHOTREXATE [Concomitant]
     Indication: DRUG USE FOR UNKNOWN INDICATION
  4. LASIX [Concomitant]
     Indication: DRUG USE FOR UNKNOWN INDICATION
  5. ATACAND [Concomitant]
     Indication: DRUG USE FOR UNKNOWN INDICATION
  6. PARIET [Concomitant]
     Indication: DRUG USE FOR UNKNOWN INDICATION
  7. CALCITONIN [Concomitant]
     Indication: DRUG USE FOR UNKNOWN INDICATION
  8. ATIVAN [Concomitant]
     Indication: DRUG USE FOR UNKNOWN INDICATION

REACTIONS (11)
  - CARDIAC DISORDER [None]
  - CARDIAC FAILURE [None]
  - FALL [None]
  - KYPHOSIS [None]
  - OSTEOPOROTIC FRACTURE [None]
  - PELVIC FRACTURE [None]
  - PNEUMONIA ASPIRATION [None]
  - RESPIRATORY DISORDER [None]
  - RESTRICTIVE PULMONARY DISEASE [None]
  - SPINAL FRACTURE [None]
  - WOUND INFECTION [None]
